FAERS Safety Report 8341561-X (Version None)
Quarter: 2012Q2

REPORT INFORMATION
  Report Type: 
  Country: None (occurrence: None)
  Receive Date: 20120507
  Receipt Date: 20120426
  Transmission Date: 20120825
  Serious: Yes (Hospitalization)
  Sender: FDA-Public Use
  Company Number: US-ASTRAZENECA-2012SE03763

PATIENT
  Age: 86 Year
  Sex: Female
  Weight: 55.3 kg

DRUGS (8)
  1. CRESTOR [Suspect]
     Route: 048
  2. VERAPAMIL [Concomitant]
  3. HYDROCHLOROTHIAZIDE [Concomitant]
  4. FISH OIL [Concomitant]
  5. PLAVIX [Concomitant]
  6. NIACIN [Concomitant]
  7. POTASSIUM CHLORIDE [Concomitant]
  8. CALCIUM BLOCKER [Concomitant]

REACTIONS (25)
  - HEART VALVE INCOMPETENCE [None]
  - VOMITING [None]
  - RENAL TUBULAR DISORDER [None]
  - DEEP VEIN THROMBOSIS [None]
  - GASTROENTERITIS VIRAL [None]
  - DEHYDRATION [None]
  - KIDNEY INFECTION [None]
  - BLOOD POTASSIUM DECREASED [None]
  - BODY TEMPERATURE NORMAL [None]
  - DECREASED APPETITE [None]
  - LEFT VENTRICULAR HYPERTROPHY [None]
  - PLEURAL EFFUSION [None]
  - WEIGHT DECREASED [None]
  - GASTROINTESTINAL DISORDER [None]
  - HYPERTENSION [None]
  - PNEUMONIA [None]
  - URINARY TRACT INFECTION [None]
  - DEMENTIA [None]
  - DIARRHOEA [None]
  - LETHARGY [None]
  - SEPSIS [None]
  - NAUSEA [None]
  - BODY TEMPERATURE DECREASED [None]
  - TACHYARRHYTHMIA [None]
  - DYSPNOEA [None]
